FAERS Safety Report 12779352 (Version 1)
Quarter: 2016Q3

REPORT INFORMATION
  Report Type: Spontaneous
  Country: US (occurrence: US)
  Receive Date: 20160922
  Receipt Date: 20160922
  Transmission Date: 20161109
  Serious: Yes (Hospitalization)
  Sender: FDA-Public Use
  Company Number: None

PATIENT
  Age: 65 Year
  Sex: Male
  Weight: 118.8 kg

DRUGS (2)
  1. KETOROLAC TROMETHAMINE. [Suspect]
     Active Substance: KETOROLAC TROMETHAMINE
     Indication: PAIN
     Route: 042
     Dates: start: 20160707, end: 20160707
  2. LISINOPRIL. [Suspect]
     Active Substance: LISINOPRIL
     Indication: HYPERTENSION
     Route: 048
     Dates: start: 20150128, end: 20160708

REACTIONS (3)
  - Angioedema [None]
  - Tongue oedema [None]
  - Contrast media reaction [None]

NARRATIVE: CASE EVENT DATE: 20160708
